FAERS Safety Report 19643462 (Version 1)
Quarter: 2021Q3

REPORT INFORMATION
  Report Type: Spontaneous
  Country: JP (occurrence: JP)
  Receive Date: 20210731
  Receipt Date: 20210731
  Transmission Date: 20211014
  Serious: Yes (Death)
  Sender: FDA-Public Use
  Company Number: NVSC2021JP172137

PATIENT
  Sex: Male

DRUGS (1)
  1. RECLAST [Suspect]
     Active Substance: ZOLEDRONIC ACID
     Indication: OSTEOPOROSIS
     Dosage: 5 MG Q12MO
     Route: 041
     Dates: start: 20180423, end: 20180423

REACTIONS (1)
  - Death [Fatal]

NARRATIVE: CASE EVENT DATE: 20210627
